FAERS Safety Report 9683707 (Version 2)
Quarter: 2013Q4

REPORT INFORMATION
  Report Type: Report from Study
  Country: DE (occurrence: DE)
  Receive Date: 20131112
  Receipt Date: 20131120
  Transmission Date: 20140711
  Serious: Yes (Hospitalization)
  Sender: FDA-Public Use
  Company Number: DE-PFIZER INC-2013317528

PATIENT
  Sex: Female

DRUGS (2)
  1. EXEMESTANE [Suspect]
     Indication: BREAST CANCER FEMALE
     Dosage: 25 MG, 1X/DAY
     Dates: start: 20131016, end: 20131024
  2. AFINITOR [Suspect]
     Indication: BREAST CANCER FEMALE
     Dosage: 5 MG, 1X/DAY
     Dates: start: 20131016, end: 20131024

REACTIONS (1)
  - General physical health deterioration [Not Recovered/Not Resolved]
